FAERS Safety Report 5562778-3 (Version None)
Quarter: 2007Q4

REPORT INFORMATION
  Report Type: 
  Country: None (occurrence: None)
  Receive Date: 20071217
  Receipt Date: 20071210
  Transmission Date: 20080405
  Serious: Yes (Death)
  Sender: FDA-Public Use
  Company Number: AR-NOVOPROD-270153

PATIENT

DRUGS (2)
  1. NOVOSEVEN [Suspect]
     Indication: LIVER INJURY
     Dosage: 17.8 MG, UNK
     Route: 042
     Dates: start: 20071018
  2. NOVOSEVEN [Suspect]
     Dosage: 14.4 UNK, UNK
     Dates: start: 20071029

REACTIONS (1)
  - DEATH [None]
